FAERS Safety Report 18791641 (Version 1)
Quarter: 2021Q1

REPORT INFORMATION
  Report Type: Spontaneous
  Country: US (occurrence: US)
  Receive Date: 20210126
  Receipt Date: 20210126
  Transmission Date: 20210419
  Serious: No
  Sender: FDA-Public Use
  Company Number: US-PERRIGO-20US001168

PATIENT
  Age: 86 Year
  Sex: Male
  Weight: 77.1 kg

DRUGS (1)
  1. PERMETHRIN. [Suspect]
     Active Substance: PERMETHRIN
     Indication: TROMBIDIASIS
     Dosage: SMALL AMOUNT, SINGLE
     Route: 061
     Dates: start: 202001, end: 202001

REACTIONS (3)
  - Expired product administered [Recovered/Resolved]
  - Product administered at inappropriate site [Recovered/Resolved]
  - Off label use [Recovered/Resolved]

NARRATIVE: CASE EVENT DATE: 202001
